FAERS Safety Report 7436823-4 (Version None)
Quarter: 2011Q2

REPORT INFORMATION
  Report Type: 
  Country: None (occurrence: None)
  Receive Date: 20110426
  Receipt Date: 20110411
  Transmission Date: 20111010
  Serious: Yes (Other)
  Sender: FDA-Public Use
  Company Number: US-BAYER-2011-032451

PATIENT
  Age: 46 Year
  Sex: Female

DRUGS (1)
  1. MIRENA [Suspect]
     Indication: MENORRHAGIA
     Dosage: UNK UNK, CONT
     Route: 015
     Dates: start: 20090101

REACTIONS (10)
  - INFECTION [None]
  - VULVOVAGINAL PRURITUS [None]
  - OVARIAN CYST [None]
  - ABDOMINAL PAIN [None]
  - DYSPAREUNIA [None]
  - EYE INFECTION [None]
  - GLAUCOMA [None]
  - VAGINAL DISCHARGE [None]
  - VAGINAL ODOUR [None]
  - THYROID DISORDER [None]
